FAERS Safety Report 9288573 (Version 1)
Quarter: 2013Q2

REPORT INFORMATION
  Report Type: Spontaneous
  Country: GB (occurrence: GB)
  Receive Date: 20130514
  Receipt Date: 20130514
  Transmission Date: 20140414
  Serious: Yes (Life-Threatening)
  Sender: FDA-Public Use
  Company Number: GB-PFIZER INC-2013148672

PATIENT
  Age: 51 Year
  Sex: Male
  Weight: 58 kg

DRUGS (2)
  1. CHAMPIX [Suspect]
     Indication: SMOKING CESSATION THERAPY
     Route: 048
     Dates: start: 20130204, end: 20130305
  2. PANTOPRAZOLE [Concomitant]

REACTIONS (1)
  - Self injurious behaviour [Recovered/Resolved with Sequelae]
